FAERS Safety Report 15691133 (Version 1)
Quarter: 2018Q4

REPORT INFORMATION
  Report Type: Spontaneous
  Country: GR (occurrence: GR)
  Receive Date: 20181205
  Receipt Date: 20181205
  Transmission Date: 20190205
  Serious: Yes (Other)
  Sender: FDA-Public Use
  Company Number: PHHY2018GR173849

PATIENT
  Age: 72 Year
  Sex: Female

DRUGS (5)
  1. SOLOSA [Concomitant]
     Active Substance: GLIMEPIRIDE
     Indication: DIABETES MELLITUS
     Dosage: UNK, QD
     Route: 065
  2. LETROZOLE. [Suspect]
     Active Substance: LETROZOLE
     Indication: MASTECTOMY
     Dosage: 1 ?G/L, QD
     Route: 048
     Dates: start: 2013
  3. CONCOR [Concomitant]
     Active Substance: BISOPROLOL FUMARATE
     Indication: CARDIOVASCULAR DISORDER
     Dosage: 0.5 ?G/L, QD
     Route: 048
  4. JANUMET [Suspect]
     Active Substance: METFORMIN HYDROCHLORIDE\SITAGLIPTIN PHOSPHATE
     Indication: TYPE 2 DIABETES MELLITUS
     Dosage: 1 ?G/L, QD
     Route: 048
     Dates: start: 2012
  5. OLARTAN PLUS [Concomitant]
     Indication: ESSENTIAL HYPERTENSION
     Dosage: 1 ?G/L, QD
     Route: 048

REACTIONS (3)
  - Breast cancer [Unknown]
  - Inappropriate schedule of product administration [Unknown]
  - Wrong product administered [Unknown]

NARRATIVE: CASE EVENT DATE: 2012
